FAERS Safety Report 4527727-5 (Version None)
Quarter: 2004Q4

REPORT INFORMATION
  Report Type: 
  Country: None (occurrence: None)
  Receive Date: 20041130
  Receipt Date: 20041018
  Transmission Date: 20050328
  Serious: No
  Sender: FDA-Public Use
  Company Number: WAES 0410USA02983

PATIENT

DRUGS (2)
  1. ZETIA [Suspect]
     Dosage: PO
     Route: 048
  2. [THERAPY UNSPECIFIED] [Concomitant]

REACTIONS (2)
  - DIZZINESS [None]
  - FATIGUE [None]
